FAERS Safety Report 18501078 (Version 1)
Quarter: 2020Q4

REPORT INFORMATION
  Report Type: Spontaneous
  Country: SE (occurrence: SE)
  Receive Date: 20201113
  Receipt Date: 20201113
  Transmission Date: 20210114
  Serious: Yes (Hospitalization)
  Sender: FDA-Public Use
  Company Number: SE-ACCORD-208196

PATIENT
  Age: 78 Year
  Sex: Male

DRUGS (8)
  1. CREON [Concomitant]
     Active Substance: PANCRELIPASE AMYLASE\PANCRELIPASE LIPASE\PANCRELIPASE PROTEASE
  2. OXALIPLATIN. [Concomitant]
     Active Substance: OXALIPLATIN
  3. FELODIPINE. [Concomitant]
     Active Substance: FELODIPINE
  4. FOLIC ACID. [Concomitant]
     Active Substance: FOLIC ACID
  5. ATENOLOL/ATENOLOL HYDROCHLORIDE [Concomitant]
     Active Substance: ATENOLOL HYDROCHLORIDE
  6. ALFUZOSIN [Concomitant]
     Active Substance: ALFUZOSIN
  7. FLUOROURACIL. [Suspect]
     Active Substance: FLUOROURACIL
     Indication: PANCREATIC CARCINOMA
     Dosage: SECOND REGIMEN OF FOLFIRINOX
     Route: 042
     Dates: start: 20201005, end: 20201007
  8. IRINOTECAN [Concomitant]
     Active Substance: IRINOTECAN

REACTIONS (3)
  - Electrocardiogram abnormal [Recovered/Resolved]
  - Myocardial ischaemia [Recovered/Resolved]
  - Chest pain [Recovered/Resolved]

NARRATIVE: CASE EVENT DATE: 20201007
